FAERS Safety Report 5042108-6 (Version None)
Quarter: 2006Q2

REPORT INFORMATION
  Report Type: 
  Country: None (occurrence: None)
  Receive Date: 20060627
  Receipt Date: 20060613
  Transmission Date: 20061013
  Serious: Yes (Hospitalization)
  Sender: FDA-Public Use
  Company Number: 2006-143828-NL

PATIENT
  Age: 31 Year
  Sex: Female
  Weight: 90.7 kg

DRUGS (1)
  1. NUVARING [Suspect]
     Indication: CONTRACEPTION
     Dosage: VAGINAL, 3 WEEKS IN/ 1 WEEK OUT
     Route: 067
     Dates: start: 20060401, end: 20060606

REACTIONS (2)
  - HYPERTENSION [None]
  - PNEUMONIA [None]
